FAERS Safety Report 9892445 (Version 1)
Quarter: 2014Q1

REPORT INFORMATION
  Report Type: Spontaneous
  Country: US (occurrence: US)
  Receive Date: 20140212
  Receipt Date: 20140212
  Transmission Date: 20141002
  Serious: Yes (Other)
  Sender: FDA-Public Use
  Company Number: US-ACTAVIS-2014-02303

PATIENT
  Age: 34 Year
  Sex: Female

DRUGS (5)
  1. FENTANYL CITRATE (WATSON LABORATORIES) [Suspect]
     Indication: INCISION SITE PAIN
     Dosage: 100 ?G
     Route: 042
  2. MORPHINE SULFATE (WATSON LABORATORIES) [Suspect]
     Indication: INCISION SITE PAIN
     Dosage: 12 MG, TOTAL
     Route: 042
  3. OXYCODONE-ACETAMINOPHEN 10-325 [Suspect]
     Indication: INCISION SITE PAIN
     Dosage: 5/325 MG
     Route: 048
  4. HYDROMORPHONE HYDROCHLORIDE (WATSON LABORATORIES) (HYDROMORPHONE HYDROCHLORIDE) INJECTION, 10MG/ML [Suspect]
     Indication: INCISION SITE PAIN
     Dosage: 2 MG, TOTAL
     Route: 042
  5. METHYLERGONOVINE [Concomitant]
     Indication: UTERINE ATONY
     Dosage: UNK
     Route: 030

REACTIONS (2)
  - Sedation [Unknown]
  - Dizziness [Unknown]
